FAERS Safety Report 8601261-5 (Version None)
Quarter: 2012Q3

REPORT INFORMATION
  Report Type: 
  Country: None (occurrence: None)
  Receive Date: 20120817
  Receipt Date: 20120814
  Transmission Date: 20120928
  Serious: Yes (Death)
  Sender: FDA-Public Use
  Company Number: US-CELGENEUS-163-21880-12050345

PATIENT
  Sex: Female

DRUGS (9)
  1. ZOMETA [Concomitant]
     Indication: MULTIPLE MYELOMA
     Dosage: .0333 MILLIGRAM
     Route: 065
  2. ASPIRIN [Concomitant]
     Dosage: 325 MILLIGRAM
     Route: 065
  3. METOPROLOL TARTRATE [Concomitant]
     Dosage: 25 MILLIGRAM
     Route: 065
  4. MACROBID [Concomitant]
     Dosage: 50 MILLIGRAM
     Route: 065
  5. REVLIMID [Suspect]
     Indication: MULTIPLE MYELOMA
     Dosage: 10 MILLIGRAM
     Route: 048
     Dates: start: 20120331, end: 20120401
  6. LISINOPRIL [Concomitant]
     Dosage: 10 MILLIGRAM
     Route: 065
  7. ACYCLOVIR [Concomitant]
     Route: 065
  8. SIMVASTATIN [Concomitant]
     Dosage: 10 MILLIGRAM
     Route: 065
  9. SERTRALINE HYDROCHLORIDE [Concomitant]
     Dosage: 50 MILLIGRAM
     Route: 065

REACTIONS (1)
  - MULTIPLE MYELOMA [None]
